FAERS Safety Report 16012500 (Version 1)
Quarter: 2019Q1

REPORT INFORMATION
  Report Type: Report from Study
  Country: US (occurrence: US)
  Receive Date: 20190227
  Receipt Date: 20190227
  Transmission Date: 20190418
  Serious: Yes (Other)
  Sender: FDA-Public Use
  Company Number: US-MYLANLABS-2019M1016974

PATIENT
  Age: 36 Year
  Sex: Female

DRUGS (3)
  1. TEMOZOLOMIDE. [Suspect]
     Active Substance: TEMOZOLOMIDE
     Indication: GLIOBLASTOMA
     Dosage: FIRST LINE THERAPY: TEMOZOLOMIDE ALONG WITH RADIOTHERAPY, AND ADDITIONAL 4 CYCLES OF TEMOZOLOMIDE...
     Route: 065
  2. TEMOZOLOMIDE. [Suspect]
     Active Substance: TEMOZOLOMIDE
     Dosage: SECOND LINE THERAPY: DOSE: 150MG/M2 (5/28 DAYS); RECEIVED 2 CYCLES
     Route: 065
  3. INDOXIMOD [Suspect]
     Active Substance: INDOXIMOD
     Indication: GLIOBLASTOMA
     Dosage: 28-DAY CYCLE; RECEIVED 2 CYCLES
     Route: 048

REACTIONS (1)
  - Tumour pseudoprogression [Unknown]
